FAERS Safety Report 23798492 (Version 1)
Quarter: 2024Q2

REPORT INFORMATION
  Report Type: Spontaneous
  Country: BR (occurrence: BR)
  Receive Date: 20240430
  Receipt Date: 20240430
  Transmission Date: 20240715
  Serious: Yes (Life-Threatening, Hospitalization, Other)
  Sender: FDA-Public Use
  Company Number: BR-RISINGPHARMA-BR-2024RISLIT00106

PATIENT
  Age: 46 Year
  Sex: Female

DRUGS (1)
  1. ADENOSINE [Suspect]
     Active Substance: ADENOSINE
     Indication: Supraventricular tachycardia
     Route: 042

REACTIONS (2)
  - Acute myocardial infarction [Recovered/Resolved]
  - Torsade de pointes [Recovered/Resolved]
